FAERS Safety Report 4803208-6 (Version None)
Quarter: 2005Q3

REPORT INFORMATION
  Report Type: 
  Country: None (occurrence: None)
  Receive Date: 20050929
  Receipt Date: 20050620
  Transmission Date: 20060218
  Serious: No
  Sender: FDA-Public Use
  Company Number: 05P-163-0303554-00

PATIENT
  Age: 55 Year
  Sex: Female
  Weight: 78.0187 kg

DRUGS (11)
  1. HUMIRA [Suspect]
     Indication: RHEUMATOID ARTHRITIS
     Dosage: 40 MG, 1 IN 2 WK, SUBCUTANEOUS
     Route: 058
     Dates: start: 20031006
  2. VOLTAREN [Concomitant]
  3. DIOVAN HCT [Concomitant]
  4. PROTONIX [Concomitant]
  5. PINDOLOL [Concomitant]
  6. COUMADIN [Concomitant]
  7. REMURAN [Concomitant]
  8. HORMONE PATCH [Concomitant]
  9. MULTIIVITAMINS [Concomitant]
  10. PROGESTERONE [Concomitant]
  11. CALCIUM GLUCONATE [Concomitant]

REACTIONS (6)
  - ANOREXIA [None]
  - ASTHENIA [None]
  - CYSTITIS [None]
  - FEELING COLD [None]
  - HYPERTENSION [None]
  - NAUSEA [None]
